FAERS Safety Report 6960182-4 (Version None)
Quarter: 2010Q3

REPORT INFORMATION
  Report Type: 
  Country: None (occurrence: None)
  Receive Date: 20100901
  Receipt Date: 20100825
  Transmission Date: 20110219
  Serious: Yes (Other)
  Sender: FDA-Public Use
  Company Number: JP-BRISTOL-MYERS SQUIBB COMPANY-15261399

PATIENT
  Age: 53 Year
  Sex: Female

DRUGS (1)
  1. ARIPIPRAZOLE [Suspect]
     Indication: BIPOLAR DISORDER
     Dosage: TITRATED TO 12MG/D
     Dates: start: 20080901, end: 20081001

REACTIONS (3)
  - COMPULSIVE SHOPPING [None]
  - DECREASED INTEREST [None]
  - SOMNOLENCE [None]
